FAERS Safety Report 11375031 (Version 3)
Quarter: 2016Q2

REPORT INFORMATION
  Report Type: Spontaneous
  Country: JP (occurrence: JP)
  Receive Date: 20150813
  Receipt Date: 20160408
  Transmission Date: 20160815
  Serious: Yes (Death, Hospitalization, Other)
  Sender: FDA-Public Use
  Company Number: JP-AMGEN-JPNSP2015063176

PATIENT
  Age: 76 Year
  Sex: Male
  Weight: 62.5 kg

DRUGS (10)
  1. CALCIUM LEVOFOLINATE [Concomitant]
     Active Substance: LEVOLEUCOVORIN CALCIUM
     Indication: APPENDIX CANCER
     Dosage: 334.6 MG, Q2WEEKS
     Route: 041
     Dates: start: 20150521, end: 20150521
  2. GRANISETRON                        /01178102/ [Concomitant]
     Active Substance: GRANISETRON
     Indication: PREMEDICATION
     Dosage: 3 MG, Q2WEEKS
     Route: 041
     Dates: start: 20150521, end: 20150521
  3. IRINOTECAN HYDROCHLORIDE. [Concomitant]
     Active Substance: IRINOTECAN HYDROCHLORIDE
     Indication: MALIGNANT ASCITES
  4. 5-FU                               /00098801/ [Concomitant]
     Active Substance: FLUOROURACIL
     Indication: MALIGNANT ASCITES
  5. VECTIBIX [Suspect]
     Active Substance: PANITUMUMAB
     Indication: MALIGNANT ASCITES
  6. IRINOTECAN HYDROCHLORIDE. [Concomitant]
     Active Substance: IRINOTECAN HYDROCHLORIDE
     Indication: APPENDIX CANCER
     Dosage: 250.95 MG, Q2WEEKS
     Route: 041
     Dates: start: 20150521, end: 20150521
  7. DEXART [Concomitant]
     Active Substance: DEXAMETHASONE SODIUM PHOSPHATE
     Indication: PREMEDICATION
     Dosage: 6.6 MG, Q2WEEKS
     Route: 041
     Dates: start: 20150521, end: 20150521
  8. CALCIUM LEVOFOLINATE [Concomitant]
     Active Substance: LEVOLEUCOVORIN CALCIUM
     Indication: MALIGNANT ASCITES
  9. 5-FU                               /00098801/ [Concomitant]
     Active Substance: FLUOROURACIL
     Indication: APPENDIX CANCER
     Dosage: 4015 MG, Q2WEEKS
     Route: 041
     Dates: start: 20150521
  10. VECTIBIX [Suspect]
     Active Substance: PANITUMUMAB
     Indication: APPENDIX CANCER
     Dosage: 379.2 MG, Q2WEEKS
     Route: 041
     Dates: start: 20150521, end: 20150521

REACTIONS (1)
  - Interstitial lung disease [Fatal]

NARRATIVE: CASE EVENT DATE: 20150603
